FAERS Safety Report 19219205 (Version 1)
Quarter: 2021Q2

REPORT INFORMATION
  Report Type: Spontaneous
  Country: US (occurrence: US)
  Receive Date: 20210506
  Receipt Date: 20210506
  Transmission Date: 20210717
  Serious: No
  Sender: FDA-Public Use
  Company Number: US-ROCHE-2618925

PATIENT
  Age: 80 Year
  Sex: Female
  Weight: 85.81 kg

DRUGS (1)
  1. ESBRIET [Suspect]
     Active Substance: PIRFENIDONE
     Indication: IDIOPATHIC PULMONARY FIBROSIS
     Dosage: 801 MG TID ;ONGOING: YES
     Route: 048
     Dates: start: 20200211

REACTIONS (1)
  - Product use complaint [Unknown]
